FAERS Safety Report 12093496 (Version 4)
Quarter: 2016Q4

REPORT INFORMATION
  Report Type: Report from Study
  Country: AU (occurrence: AU)
  Receive Date: 20160219
  Receipt Date: 20161101
  Transmission Date: 20170206
  Serious: Yes (Hospitalization)
  Sender: FDA-Public Use
  Company Number: AU-ROCHE-1708746

PATIENT
  Age: 74 Year
  Sex: Male
  Weight: 65.2 kg

DRUGS (12)
  1. VEMURAFENIB [Suspect]
     Active Substance: VEMURAFENIB
     Indication: RECTAL CANCER
     Route: 048
     Dates: start: 20160219
  2. OXYNORM [Concomitant]
     Active Substance: OXYCODONE HYDROCHLORIDE
     Route: 065
     Dates: start: 201410
  3. CLEXANE [Concomitant]
     Active Substance: ENOXAPARIN SODIUM
     Route: 065
     Dates: start: 201410
  4. ERLOTINIB [Suspect]
     Active Substance: ERLOTINIB
     Indication: RECTAL CANCER
     Dosage: DATE OF LAST DOSE PRIOR TO SAE: 07/FEB/2016
     Route: 048
     Dates: start: 20160118, end: 20160207
  5. ROSUVASTATIN. [Concomitant]
     Active Substance: ROSUVASTATIN
     Route: 065
     Dates: start: 2005, end: 20160118
  6. LIPITOR [Concomitant]
     Active Substance: ATORVASTATIN CALCIUM
     Route: 065
     Dates: start: 1990, end: 20160118
  7. ALLOPURINOL. [Concomitant]
     Active Substance: ALLOPURINOL
     Route: 065
     Dates: start: 1989
  8. MINOCYCLINE [Concomitant]
     Active Substance: MINOCYCLINE\MINOCYCLINE HYDROCHLORIDE
     Route: 065
     Dates: start: 20160202
  9. ERLOTINIB [Suspect]
     Active Substance: ERLOTINIB
     Indication: COLON CANCER
     Dosage: DOSE REDUCED
     Route: 048
     Dates: start: 20160219
  10. VEMURAFENIB [Suspect]
     Active Substance: VEMURAFENIB
     Indication: COLON CANCER
     Dosage: DATE OF LAST DOSE PRIOR TO SAE: 07/FEB/2016
     Route: 048
     Dates: start: 20160118, end: 20160207
  11. SOTALOL. [Concomitant]
     Active Substance: SOTALOL
     Route: 065
     Dates: start: 200612
  12. TARGIN [Concomitant]
     Active Substance: NALOXONE HYDROCHLORIDE\OXYCODONE HYDROCHLORIDE
     Dosage: TOTAL DAILY DOSE/UNIT: 40/20 MG, ONGOING
     Route: 065
     Dates: start: 201410

REACTIONS (4)
  - Nausea [Recovered/Resolved]
  - Diarrhoea [Recovered/Resolved]
  - Dehydration [Recovered/Resolved]
  - Lymph node pain [Recovered/Resolved]

NARRATIVE: CASE EVENT DATE: 20160131
